FAERS Safety Report 5631531-4 (Version None)
Quarter: 2008Q1

REPORT INFORMATION
  Report Type: 
  Country: None (occurrence: None)
  Receive Date: 20080215
  Receipt Date: 20080206
  Transmission Date: 20080703
  Serious: Yes (Other)
  Sender: FDA-Public Use
  Company Number: 231255J08USA

PATIENT
  Age: 42 Year
  Sex: Male

DRUGS (1)
  1. REBIF [Suspect]
     Indication: MULTIPLE SCLEROSIS
     Dosage: 44 MCG, 3 IN 1 WEEKS, SUBCUTANEOUS
     Route: 058
     Dates: start: 20071213

REACTIONS (7)
  - BLINDNESS TRANSIENT [None]
  - EYE DISORDER [None]
  - MYDRIASIS [None]
  - NO THERAPEUTIC RESPONSE [None]
  - VISUAL ACUITY REDUCED [None]
  - VITRITIS [None]
  - WHITE BLOOD CELL COUNT INCREASED [None]
